FAERS Safety Report 6783606-4 (Version None)
Quarter: 2010Q2

REPORT INFORMATION
  Report Type: 
  Country: None (occurrence: None)
  Receive Date: 20100622
  Receipt Date: 20100611
  Transmission Date: 20101027
  Serious: Yes (Life-Threatening, Hospitalization)
  Sender: FDA-Public Use
  Company Number: FR-TEVA-237662ISR

PATIENT
  Age: 70 Year
  Sex: Male

DRUGS (2)
  1. AZILECT [Suspect]
     Indication: PARKINSON'S DISEASE
     Route: 048
     Dates: start: 20100101, end: 20100601
  2. STALEVO 100 [Interacting]
     Indication: PARKINSON'S DISEASE
     Route: 048
     Dates: end: 20100601

REACTIONS (4)
  - DRUG INTERACTION [None]
  - DYSKINESIA [None]
  - MALAISE [None]
  - OVERDOSE [None]
